FAERS Safety Report 6090427-7 (Version None)
Quarter: 2009Q1

REPORT INFORMATION
  Report Type: 
  Country: None (occurrence: None)
  Receive Date: 20090224
  Receipt Date: 20090127
  Transmission Date: 20090719
  Serious: No
  Sender: FDA-Public Use
  Company Number: US-ABBOTT-08P-163-0495395-00

PATIENT
  Sex: Male

DRUGS (7)
  1. SIMCOR [Suspect]
     Indication: BLOOD CHOLESTEROL INCREASED
     Dosage: 500MG/200MG EVERY NIGHT
     Dates: start: 20081223, end: 20081230
  2. SIMCOR [Suspect]
     Indication: LOW DENSITY LIPOPROTEIN
     Dosage: 2 PILLS EVERY NIGHT
     Dates: start: 20081230
  3. SIMCOR [Suspect]
     Indication: BLOOD TRIGLYCERIDES
  4. ASPIRIN [Concomitant]
     Indication: DRUG USE FOR UNKNOWN INDICATION
     Dosage: 81 MG IN MORNING AND EVENING
     Route: 048
  5. METOPROLOL [Concomitant]
     Indication: DRUG USE FOR UNKNOWN INDICATION
     Route: 048
  6. MIRAPEX [Concomitant]
     Indication: DRUG USE FOR UNKNOWN INDICATION
     Route: 048
  7. TRAZODONE HCL [Concomitant]
     Indication: INSOMNIA
     Route: 048

REACTIONS (7)
  - BACK PAIN [None]
  - DIARRHOEA [None]
  - FLUSHING [None]
  - HEADACHE [None]
  - NAUSEA [None]
  - PRURITUS [None]
  - RASH [None]
